FAERS Safety Report 11648270 (Version 2)
Quarter: 2016Q2

REPORT INFORMATION
  Report Type: Spontaneous
  Country: US (occurrence: US)
  Receive Date: 20151021
  Receipt Date: 20160513
  Transmission Date: 20160815
  Serious: Yes (Other)
  Sender: FDA-Public Use
  Company Number: US-PFIZER INC-2015282481

PATIENT
  Age: 75 Year
  Sex: Female
  Weight: 56 kg

DRUGS (3)
  1. OXYCODONE [Concomitant]
     Active Substance: OXYCODONE
     Dosage: UNK
  2. HERCEPTIN [Concomitant]
     Active Substance: TRASTUZUMAB
     Dosage: UNK, EVERY 3 WEEKS
  3. AROMASIN [Suspect]
     Active Substance: EXEMESTANE
     Indication: BREAST CANCER FEMALE
     Dosage: 25 MG, 1X/DAY
     Route: 048
     Dates: start: 2015

REACTIONS (4)
  - Myopathy [Unknown]
  - Neuropathy peripheral [Recovering/Resolving]
  - Pain [Unknown]
  - Abdominal discomfort [Recovered/Resolved]
